FAERS Safety Report 5065420-3 (Version None)
Quarter: 2006Q3

REPORT INFORMATION
  Report Type: 
  Country: None (occurrence: None)
  Receive Date: 20060725
  Receipt Date: 20060707
  Transmission Date: 20061208
  Serious: Yes (Hospitalization)
  Sender: FDA-Public Use
  Company Number: 2006RR-02977

PATIENT
  Age: 44 Year
  Sex: Male
  Weight: 49.9 kg

DRUGS (6)
  1. AMOXICILLIN + CLAVULANATE POTASSIUM [Suspect]
     Indication: BACTERIAL INFECTION
     Dosage: 1 G, BID, ORAL
     Route: 048
     Dates: start: 20040101, end: 20040101
  2. OMEPRAZOLE [Suspect]
     Indication: INTESTINAL OBSTRUCTION
     Dosage: 20 MG, BID
  3. NEOSTIGMINE BROMIDE [Concomitant]
  4. TRIMEBUTINE [Concomitant]
  5. AMOXICILLIN + CLAVULANATE POTASSIUM [Concomitant]
  6. OMEPRAZOLE [Concomitant]

REACTIONS (11)
  - ABDOMINAL DISTENSION [None]
  - BLOOD ETHANOL INCREASED [None]
  - CANDIDIASIS [None]
  - CONFUSIONAL STATE [None]
  - CULTURE STOOL POSITIVE [None]
  - DISORIENTATION [None]
  - DRUG INTERACTION [None]
  - DYSARTHRIA [None]
  - ERUCTATION [None]
  - FUNGAL INFECTION [None]
  - MUSCLE ENZYME INCREASED [None]
